FAERS Safety Report 6060367-8 (Version None)
Quarter: 2009Q1

REPORT INFORMATION
  Report Type: 
  Country: None (occurrence: None)
  Receive Date: 20090130
  Receipt Date: 20090130
  Transmission Date: 20090719
  Serious: Yes (Death)
  Sender: FDA-Public Use
  Company Number: None

PATIENT
  Age: 46 Year
  Sex: Male
  Weight: 90.7194 kg

DRUGS (1)
  1. RAPTIVA [Suspect]
     Indication: PSORIASIS
     Dosage: WEEKLY SQ
     Route: 058
     Dates: start: 20080101, end: 20090129

REACTIONS (7)
  - DEHYDRATION [None]
  - GASTROINTESTINAL BACTERIAL INFECTION [None]
  - LACTIC ACIDOSIS [None]
  - NAUSEA [None]
  - RESPIRATORY FAILURE [None]
  - SEPSIS [None]
  - VOMITING [None]
